FAERS Safety Report 24435687 (Version 1)
Quarter: 2024Q4

REPORT INFORMATION
  Report Type: Spontaneous
  Country: PT (occurrence: PT)
  Receive Date: 20241015
  Receipt Date: 20241015
  Transmission Date: 20250114
  Serious: Yes (Other)
  Sender: AUROBINDO
  Company Number: PT-INFARMED-F202409-830

PATIENT
  Age: 44 Year
  Sex: Male

DRUGS (1)
  1. EMTRICITABINE\TENOFOVIR DISOPROXIL [Suspect]
     Active Substance: EMTRICITABINE\TENOFOVIR DISOPROXIL
     Indication: Prophylaxis against HIV infection
     Dosage: 445 MILLIGRAM, ONCE A DAY ( 1 24/24 HOUR TABLET)
     Route: 048
     Dates: start: 20240402, end: 20240506

REACTIONS (1)
  - Abdominal discomfort [Recovered/Resolved]
